FAERS Safety Report 13682464 (Version 1)
Quarter: 2017Q2

REPORT INFORMATION
  Report Type: Spontaneous
  Country: US (occurrence: US)
  Receive Date: 20170622
  Receipt Date: 20170622
  Transmission Date: 20170830
  Serious: Yes (Hospitalization)
  Sender: FDA-Public Use
  Company Number: None

PATIENT
  Sex: Male

DRUGS (1)
  1. ENBREL [Suspect]
     Active Substance: ETANERCEPT
     Indication: RHEUMATOID ARTHRITIS
     Dosage: 50MG ONCE A WEEK SQ
     Route: 058
     Dates: start: 20170513, end: 20170605

REACTIONS (4)
  - Nonspecific reaction [None]
  - Therapy cessation [None]
  - Cardiac failure congestive [None]
  - Lymphadenitis [None]
